FAERS Safety Report 12928957 (Version 2)
Quarter: 2016Q4

REPORT INFORMATION
  Report Type: Report from Study
  Country: US (occurrence: US)
  Receive Date: 20161110
  Receipt Date: 20161214
  Transmission Date: 20170207
  Serious: Yes (Hospitalization)
  Sender: FDA-Public Use
  Company Number: US-JNJFOC-20161017185

PATIENT
  Age: 69 Year
  Sex: Female

DRUGS (11)
  1. FLONASE [Concomitant]
     Active Substance: FLUTICASONE PROPIONATE
  2. TYLENOL [Concomitant]
     Active Substance: ACETAMINOPHEN
  3. NORVASC [Concomitant]
     Active Substance: AMLODIPINE BESYLATE
  4. LOSARTAN. [Concomitant]
     Active Substance: LOSARTAN
  5. PROVENTIL [Concomitant]
     Active Substance: ALBUTEROL
  6. CORTISONE [Concomitant]
     Active Substance: CORTISONE\HYDROCORTISONE
  7. NIZORAL [Concomitant]
     Active Substance: KETOCONAZOLE
  8. IMBRUVICA [Suspect]
     Active Substance: IBRUTINIB
     Indication: CHRONIC LYMPHOCYTIC LEUKAEMIA
     Route: 048
     Dates: start: 20161007, end: 2016
  9. ZYRTEC [Concomitant]
     Active Substance: CETIRIZINE HYDROCHLORIDE
  10. COREG [Concomitant]
     Active Substance: CARVEDILOL
  11. HYDROXYZINE [Concomitant]
     Active Substance: HYDROXYZINE\HYDROXYZINE HYDROCHLORIDE

REACTIONS (6)
  - Myocardial infarction [Unknown]
  - Dysuria [Recovering/Resolving]
  - Swelling face [Not Recovered/Not Resolved]
  - Dysgeusia [Not Recovered/Not Resolved]
  - Diarrhoea [Recovered/Resolved]
  - Flushing [Not Recovered/Not Resolved]

NARRATIVE: CASE EVENT DATE: 201610
